FAERS Safety Report 13908835 (Version 2)
Quarter: 2017Q3

REPORT INFORMATION
  Report Type: Spontaneous
  Country: TR (occurrence: TR)
  Receive Date: 20170827
  Receipt Date: 20170922
  Transmission Date: 20171127
  Serious: Yes (Hospitalization, Other)
  Sender: FDA-Public Use
  Company Number: TR-BAXTER-2017BAX030626

PATIENT
  Age: 85 Year
  Sex: Male

DRUGS (2)
  1. PHYSIONEAL 40 %1.36 CLEARFLEX PERITON DIYALIZ COZELTISI [Suspect]
     Active Substance: CALCIUM CL\DEXTROSE\MAGNESIUM CL\SODIUM BICAR\SODIUM CL\SODIUM LACT
     Indication: PERITONEAL DIALYSIS
     Route: 033
  2. EXTRANEAL [Suspect]
     Active Substance: CALCIUM CHLORIDE\ICODEXTRIN\MAGNESIUM CHLORIDE\SODIUM CHLORIDE\SODIUM LACTATE
     Indication: PERITONEAL DIALYSIS
     Route: 033

REACTIONS (3)
  - Cerebrovascular accident [Not Recovered/Not Resolved]
  - Hypertension [Unknown]
  - Urinary tract infection [Unknown]
